FAERS Safety Report 20118744 (Version 1)
Quarter: 2021Q4

REPORT INFORMATION
  Report Type: Spontaneous
  Country: CN (occurrence: CN)
  Receive Date: 20211126
  Receipt Date: 20211126
  Transmission Date: 20220303
  Serious: Yes (Other)
  Sender: FDA-Public Use
  Company Number: CN-TAKEDA-2021TUS073702

PATIENT
  Age: 48 Year
  Sex: Female
  Weight: 54 kg

DRUGS (3)
  1. ALBUMIN HUMAN [Suspect]
     Active Substance: ALBUMIN HUMAN
     Indication: Hypoalbuminaemia
     Dosage: 50 MILLILITER
     Route: 041
     Dates: start: 20211113, end: 20211113
  2. CHYMOTRYPSIN [Concomitant]
     Active Substance: CHYMOTRYPSIN
     Dosage: UNK
     Route: 050
  3. AMBROXOL HYDROCHLORIDE [Concomitant]
     Active Substance: AMBROXOL HYDROCHLORIDE
     Dosage: UNK
     Route: 050

REACTIONS (3)
  - Hypoxia [Recovered/Resolved]
  - Hypotension [Recovered/Resolved]
  - Rash [Recovered/Resolved]

NARRATIVE: CASE EVENT DATE: 20211113
